FAERS Safety Report 6066582-1 (Version None)
Quarter: 2009Q1

REPORT INFORMATION
  Report Type: 
  Country: None (occurrence: None)
  Receive Date: 20090205
  Receipt Date: 20090130
  Transmission Date: 20090719
  Serious: Yes (Hospitalization)
  Sender: FDA-Public Use
  Company Number: A0766744A

PATIENT
  Age: 50 Year
  Sex: Female
  Weight: 93.2 kg

DRUGS (1)
  1. AVANDIA [Suspect]
     Route: 065
     Dates: start: 19980101, end: 20050101

REACTIONS (1)
  - CARDIAC DISORDER [None]
